FAERS Safety Report 5699196-3 (Version None)
Quarter: 2008Q2

REPORT INFORMATION
  Report Type: 
  Country: None (occurrence: None)
  Receive Date: 20080407
  Receipt Date: 20080407
  Transmission Date: 20081010
  Serious: Yes (Hospitalization)
  Sender: FDA-Public Use
  Company Number: None

PATIENT
  Age: 76 Year
  Sex: Male
  Weight: 82.73 kg

DRUGS (1)
  1. TERAZOSIN HCL [Suspect]
     Indication: HYPERTENSION
     Dosage: 5MG AT BEDTIME PO
     Route: 048
     Dates: start: 20070114, end: 20071214

REACTIONS (3)
  - DIZZINESS [None]
  - HYPOGLYCAEMIA [None]
  - HYPOTENSION [None]
